FAERS Safety Report 12045852 (Version 2)
Quarter: 2016Q1

REPORT INFORMATION
  Report Type: Spontaneous
  Country: FR (occurrence: FR)
  Receive Date: 20160208
  Receipt Date: 20160222
  Transmission Date: 20160526
  Serious: Yes (Other)
  Sender: FDA-Public Use
  Company Number: FR-TEVA-630644ISR

PATIENT
  Sex: Female

DRUGS (1)
  1. SEASONIQUE [Suspect]
     Active Substance: ETHINYL ESTRADIOL\LEVONORGESTREL
     Dosage: 1DF=150 MCG OF LEVONORGESTREL+30 MCG OF ETHINYLESTRADIOL + 10 MCG OF ETHINYLESTRADIOL

REACTIONS (2)
  - Haemorrhage [Unknown]
  - Menorrhagia [Unknown]
